FAERS Safety Report 4548613-0 (Version None)
Quarter: 2005Q1

REPORT INFORMATION
  Report Type: 
  Country: None (occurrence: None)
  Receive Date: 20041227
  Receipt Date: 20040916
  Transmission Date: 20050727
  Serious: No
  Sender: FDA-Public Use
  Company Number: 04P-163-0273420-00

PATIENT
  Age: 46 Year
  Sex: Female
  Weight: 127 kg

DRUGS (7)
  1. HUMIRA [Suspect]
     Indication: RHEUMATOID ARTHRITIS
     Dosage: SEE IMAGE, SUBCUTANEOUS
     Route: 058
     Dates: start: 20040716, end: 20040823
  2. HUMIRA [Suspect]
     Indication: RHEUMATOID ARTHRITIS
     Dosage: SEE IMAGE, SUBCUTANEOUS
     Route: 058
     Dates: start: 20040823
  3. FLUOXETINE HYDROCHLORIDE [Concomitant]
  4. WARFARIN SODIUM [Concomitant]
  5. PREDNISONE [Concomitant]
  6. SALSALATE [Concomitant]
  7. OXYCODONE HCL [Concomitant]

REACTIONS (1)
  - ANAEMIA [None]
